FAERS Safety Report 7650866-7 (Version None)
Quarter: 2011Q3

REPORT INFORMATION
  Report Type: 
  Country: None (occurrence: None)
  Receive Date: 20110802
  Receipt Date: 20110714
  Transmission Date: 20111222
  Serious: Yes (Other)
  Sender: FDA-Public Use
  Company Number: US-BAYER-201036730NA

PATIENT
  Age: 51 Year
  Sex: Male
  Weight: 63 kg

DRUGS (28)
  1. OPTIMARK [Suspect]
     Indication: NUCLEAR MAGNETIC RESONANCE IMAGING
  2. DILAUDID [Concomitant]
     Indication: PAIN
     Dosage: 8 MG, 5ID
  3. MAGNEVIST [Suspect]
     Indication: NUCLEAR MAGNETIC RESONANCE IMAGING
     Dosage: 20 ML, ONCE
     Dates: start: 20050616, end: 20050616
  4. OXYCONTIN [Concomitant]
     Indication: PAIN
     Dosage: 320 MG, QID
  5. METHADONE HCL [Concomitant]
  6. GABAPENTIN [Concomitant]
     Indication: NEURALGIA
     Dosage: 400 MG, TID
  7. MAGNESIUM [Concomitant]
     Indication: GASTROINTESTINAL DISORDER
  8. BACLOFEN [Concomitant]
     Indication: MUSCLE RELAXANT THERAPY
     Dosage: 1/2 TABLET
  9. OXYCODONE HCL [Concomitant]
  10. OMNIPAQUE 140 [Concomitant]
     Indication: COMPUTERISED TOMOGRAM ABDOMEN
     Dosage: 80 ML, UNK
     Dates: start: 20091127
  11. MELATONIN [Concomitant]
  12. ROXICODONE [Concomitant]
  13. OXYCONTIN [Concomitant]
  14. OMNISCAN [Suspect]
     Indication: NUCLEAR MAGNETIC RESONANCE IMAGING
  15. MORPHINE SULFATE [Concomitant]
     Indication: PAIN
     Dosage: 30 MG, UNK
  16. BACLOFEN [Concomitant]
  17. OXYCODONE HCL [Concomitant]
     Indication: PAIN
  18. OMEPRAZOLE [Concomitant]
     Indication: GASTROOESOPHAGEAL REFLUX DISEASE
     Dosage: 20 MG, BID
  19. HYDROMORPHONE HCL [Concomitant]
  20. METHADONE HYDROCHLORIDE [Concomitant]
     Indication: PAIN
     Dosage: 10 MG, UNK
  21. TOCAINIDE HYDROCHLORIDE [Concomitant]
  22. MAGNEVIST [Suspect]
     Dosage: 20 ML, UNK
     Dates: start: 20060524, end: 20060524
  23. POTASSIUM [Concomitant]
     Indication: PROPHYLAXIS
  24. ASCORBIC ACID [Concomitant]
  25. ACIPHEX [Concomitant]
  26. LYRICA [Concomitant]
  27. OXYCODONE HYDROCHLORIDE [Concomitant]
  28. GABAPENTIN [Concomitant]

REACTIONS (16)
  - JOINT STIFFNESS [None]
  - NEPHROGENIC SYSTEMIC FIBROSIS [None]
  - DEFORMITY [None]
  - SCAR [None]
  - OEDEMA PERIPHERAL [None]
  - SCAB [None]
  - DRY SKIN [None]
  - SKIN BURNING SENSATION [None]
  - GENERAL PHYSICAL HEALTH DETERIORATION [None]
  - MYALGIA [None]
  - SKIN INDURATION [None]
  - SKIN SWELLING [None]
  - PRURITUS [None]
  - SKIN HYPERPIGMENTATION [None]
  - SKIN DISCOLOURATION [None]
  - SKIN FISSURES [None]
